FAERS Safety Report 5524747-9 (Version None)
Quarter: 2007Q4

REPORT INFORMATION
  Report Type: 
  Country: None (occurrence: None)
  Receive Date: 20071123
  Receipt Date: 20071116
  Transmission Date: 20080405
  Serious: Yes (Hospitalization, Other)
  Sender: FDA-Public Use
  Company Number: PHBS2007BR19511

PATIENT
  Age: 77 Year
  Sex: Female
  Weight: 80 kg

DRUGS (11)
  1. DIOVAN HCT [Suspect]
     Indication: HYPERTENSION
     Dosage: VALS 160 / HCT 12.5 MG/DAY
     Route: 048
  2. STUGERON [Concomitant]
     Indication: DIZZINESS
     Dosage: 25 MG/DAY
  3. CALCIUM CARBONATE [Concomitant]
     Dosage: 500 MG, UNK
  4. VITAMIN D3 [Concomitant]
     Dosage: 200 IU, UNK
  5. GLUCOSAMINE [Concomitant]
     Dosage: 500 MG, UNK
  6. CONDROITIN [Concomitant]
     Dosage: 200 IU, UNK
  7. OMEPRAZOLE [Concomitant]
     Indication: STOMACH DISCOMFORT
     Dosage: 20 MG, UNK
  8. LEXOTAN [Concomitant]
     Indication: SLEEP DISORDER
  9. TRILAX [Concomitant]
  10. DICLOFENAC SODIUM [Concomitant]
  11. PREXIGE [Concomitant]
     Dosage: 100 MG, UNK

REACTIONS (10)
  - DIARRHOEA [None]
  - DIZZINESS [None]
  - HYPERTENSION [None]
  - INSOMNIA [None]
  - MALAISE [None]
  - MUSCULOSKELETAL DISCOMFORT [None]
  - NAUSEA [None]
  - PALPITATIONS [None]
  - POLYURIA [None]
  - SURGERY [None]
